FAERS Safety Report 11640301 (Version 1)
Quarter: 2015Q4

REPORT INFORMATION
  Report Type: Spontaneous
  Country: US (occurrence: None)
  Receive Date: 20151016
  Receipt Date: 20151016
  Transmission Date: 20160304
  Serious: Yes (Hospitalization)
  Sender: FDA-Public Use
  Company Number: None

PATIENT
  Age: 73 Year
  Sex: Male
  Weight: 85 kg

DRUGS (2)
  1. CARBOPLATIN. [Suspect]
     Active Substance: CARBOPLATIN
     Indication: SMALL CELL LUNG CANCER
     Dosage: OTHER
     Route: 042
     Dates: start: 20150625
  2. ETOPOSIDE. [Suspect]
     Active Substance: ETOPOSIDE
     Dosage: OTHER
     Route: 042
     Dates: start: 20150625

REACTIONS (3)
  - Bone marrow failure [None]
  - Thrombocytopenia [None]
  - Pancytopenia [None]

NARRATIVE: CASE EVENT DATE: 20150804
